FAERS Safety Report 4833701-1 (Version None)
Quarter: 2005Q4

REPORT INFORMATION
  Report Type: 
  Country: None (occurrence: None)
  Receive Date: 20051114
  Receipt Date: 20051103
  Transmission Date: 20060501
  Serious: Yes (Hospitalization)
  Sender: FDA-Public Use
  Company Number: 2005-04292

PATIENT
  Age: 78 Year
  Sex: Male

DRUGS (1)
  1. DOXYCYCLINE HYCLATE (WATSON LABORATORIES)(DOXYCCLINE HYCLATE) UNKNOWN [Suspect]
     Indication: INFECTION
     Dosage: 3 WEEKS, ORAL
     Route: 048
     Dates: start: 20050901

REACTIONS (2)
  - ABDOMINAL PAIN UPPER [None]
  - MYOCARDIAL INFARCTION [None]
